FAERS Safety Report 13045546 (Version 1)
Quarter: 2016Q4

REPORT INFORMATION
  Report Type: Report from Study
  Country: BR (occurrence: BR)
  Receive Date: 20161220
  Receipt Date: 20161220
  Transmission Date: 20170207
  Serious: Yes (Hospitalization)
  Sender: FDA-Public Use
  Company Number: BR-BAYER-2016-029010

PATIENT
  Age: 24 Year
  Sex: Female

DRUGS (1)
  1. BETAFERON [Suspect]
     Active Substance: INTERFERON BETA-1B
     Indication: RELAPSING-REMITTING MULTIPLE SCLEROSIS
     Dosage: 1 ML, QOD
     Route: 058
     Dates: start: 201201

REACTIONS (15)
  - Injection site pain [Recovered/Resolved]
  - Chills [Recovering/Resolving]
  - Headache [Not Recovered/Not Resolved]
  - Drug dose omission [None]
  - Injection site dryness [Not Recovered/Not Resolved]
  - Abdominal pain upper [Recovered/Resolved]
  - Abdominal distension [Recovering/Resolving]
  - Injection site haematoma [Not Recovered/Not Resolved]
  - Fatigue [Not Recovered/Not Resolved]
  - Muscle contractions involuntary [Recovering/Resolving]
  - Arthralgia [Not Recovered/Not Resolved]
  - Dyspepsia [Recovering/Resolving]
  - Adverse drug reaction [None]
  - Injection site abscess [Recovered/Resolved]
  - Pain in extremity [Not Recovered/Not Resolved]

NARRATIVE: CASE EVENT DATE: 2012
